FAERS Safety Report 5345118-4 (Version None)
Quarter: 2007Q2

REPORT INFORMATION
  Report Type: 
  Country: None (occurrence: None)
  Receive Date: 20070601
  Receipt Date: 20070524
  Transmission Date: 20071010
  Serious: Yes (Death, Hospitalization)
  Sender: FDA-Public Use
  Company Number: 163-21880-06110285

PATIENT
  Sex: Female
  Weight: 49.4421 kg

DRUGS (12)
  1. REVLIMID [Suspect]
     Indication: MYELODYSPLASTIC SYNDROME
     Dosage: 10 MG, 1 IN 1 D, ORAL
     Route: 048
  2. FOLIC ACID [Concomitant]
  3. DIGOXIN [Concomitant]
  4. MAVIK [Concomitant]
  5. COREG [Concomitant]
  6. CORTEF [Concomitant]
  7. VITAMIN B6 [Concomitant]
  8. LASIX [Concomitant]
  9. KLOR-CON [Concomitant]
  10. SYNTHROID [Concomitant]
  11. MULTIVTAMINS (MULTIVITAMINS) [Concomitant]
  12. PROCRIT [Concomitant]

REACTIONS (7)
  - ASTHENIA [None]
  - CARDIAC FAILURE CONGESTIVE [None]
  - CARDIOACTIVE DRUG LEVEL INCREASED [None]
  - CARDIOMYOPATHY [None]
  - DISEASE PROGRESSION [None]
  - HEPATIC ENZYME INCREASED [None]
  - PANCYTOPENIA [None]
